FAERS Safety Report 17870601 (Version 1)
Quarter: 2020Q2

REPORT INFORMATION
  Report Type: Spontaneous
  Country: US (occurrence: US)
  Receive Date: 20200605
  Receipt Date: 20200605
  Transmission Date: 20200714
  Serious: Yes (Hospitalization)
  Sender: FDA-Public Use
  Company Number: None

PATIENT
  Sex: Female
  Weight: 72.5 kg

DRUGS (1)
  1. MK-3475 (PEMBROLIZUMAB) (776864) [Suspect]
     Active Substance: PEMBROLIZUMAB
     Dates: end: 20200504

REACTIONS (5)
  - Dyspnoea [None]
  - Cough [None]
  - Productive cough [None]
  - Pulmonary embolism [None]
  - Tachycardia [None]

NARRATIVE: CASE EVENT DATE: 20200524
